FAERS Safety Report 5754266-6 (Version None)
Quarter: 2008Q2

REPORT INFORMATION
  Report Type: 
  Country: None (occurrence: None)
  Receive Date: 20080527
  Receipt Date: 20080514
  Transmission Date: 20081010
  Serious: Yes (Death)
  Sender: FDA-Public Use
  Company Number: 2008-00983

PATIENT
  Age: 68 Year
  Sex: Female
  Weight: 54 kg

DRUGS (6)
  1. VELCADE [Suspect]
     Indication: MULTIPLE MYELOMA
     Dosage: 2 MG, INTRAVENOUS
     Route: 042
     Dates: start: 20080205, end: 20080311
  2. ZOFRAN [Concomitant]
  3. LASIX [Concomitant]
  4. PARIET (TABEPRAZOLE SODIUM) [Concomitant]
  5. RED BLOOD CELLS [Concomitant]
  6. PLATELETS [Concomitant]

REACTIONS (15)
  - ALTERED STATE OF CONSCIOUSNESS [None]
  - CARDIOMEGALY [None]
  - DYSARTHRIA [None]
  - DYSSTASIA [None]
  - ENCEPHALITIS VIRAL [None]
  - HAEMOGLOBIN DECREASED [None]
  - HYPERVISCOSITY SYNDROME [None]
  - HYPOKINESIA [None]
  - MALIGNANT NEOPLASM PROGRESSION [None]
  - MOUTH HAEMORRHAGE [None]
  - MULTIPLE MYELOMA [None]
  - NAUSEA [None]
  - PLATELET COUNT DECREASED [None]
  - PNEUMONIA ASPIRATION [None]
  - RENAL DISORDER [None]
